FAERS Safety Report 5584861-9 (Version None)
Quarter: 2008Q1

REPORT INFORMATION
  Report Type: 
  Country: None (occurrence: None)
  Receive Date: 20080104
  Receipt Date: 20071226
  Transmission Date: 20080703
  Serious: Yes (Death)
  Sender: FDA-Public Use
  Company Number: 2007SP025492

PATIENT
  Age: 46 Year
  Sex: Female
  Weight: 47.6277 kg

DRUGS (4)
  1. PROVENTIL [Suspect]
     Indication: ASTHMA
     Dosage: PO
     Route: 048
     Dates: start: 20050101, end: 20071209
  2. ALBUTEROL SULFATE [Suspect]
     Indication: ASTHMA
     Dosage: PO
     Route: 048
     Dates: start: 20050101, end: 20071209
  3. XANAX [Concomitant]
  4. LORTAB [Concomitant]

REACTIONS (3)
  - ASTHMA [None]
  - CONDITION AGGRAVATED [None]
  - FALL [None]
